FAERS Safety Report 16716808 (Version 1)
Quarter: 2019Q3

REPORT INFORMATION
  Report Type: Spontaneous
  Country: US (occurrence: US)
  Receive Date: 20190819
  Receipt Date: 20190819
  Transmission Date: 20191005
  Serious: No
  Sender: FDA-Public Use
  Company Number: US-GLAXOSMITHKLINE-US2019145785

PATIENT
  Sex: Female

DRUGS (1)
  1. NUCALA [Suspect]
     Active Substance: MEPOLIZUMAB
     Indication: ASTHMA
     Dosage: 100 MG, CYC
     Route: 058
     Dates: start: 2016

REACTIONS (10)
  - Intercepted medication error [Unknown]
  - Head discomfort [Recovered/Resolved]
  - Fluid imbalance [Unknown]
  - Product dose omission [Unknown]
  - Pruritus [Unknown]
  - Product complaint [Unknown]
  - Nerve compression [Unknown]
  - Blood pressure increased [Recovered/Resolved]
  - Headache [Unknown]
  - Therapeutic response unexpected [Unknown]
